FAERS Safety Report 10528047 (Version 1)
Quarter: 2014Q4

REPORT INFORMATION
  Report Type: Spontaneous
  Country: US (occurrence: US)
  Receive Date: 20141020
  Receipt Date: 20141020
  Transmission Date: 20150528
  Serious: Yes (Life-Threatening, Hospitalization, Other)
  Sender: FDA-Public Use
  Company Number: US-GLAXOSMITHKLINE-US2014GSK007874

PATIENT
  Age: 53 Year
  Sex: Female

DRUGS (3)
  1. BENLYSTA [Suspect]
     Active Substance: BELIMUMAB
     Indication: SYSTEMIC LUPUS ERYTHEMATOSUS
     Dosage: UNK
  2. PREDNISONE. [Concomitant]
     Active Substance: PREDNISONE
  3. PLAQUENIL [Concomitant]
     Active Substance: HYDROXYCHLOROQUINE SULFATE

REACTIONS (3)
  - Embolism [Recovered/Resolved]
  - Dyspnoea [Recovered/Resolved]
  - Chest discomfort [Recovered/Resolved]
